FAERS Safety Report 14776872 (Version 2)
Quarter: 2018Q2

REPORT INFORMATION
  Report Type: Spontaneous
  Country: NL (occurrence: NL)
  Receive Date: 20180419
  Receipt Date: 20180424
  Transmission Date: 20180711
  Serious: Yes (Hospitalization)
  Sender: FDA-Public Use
  Company Number: NL-CONCORDIA PHARMACEUTICALS INC.-E2B_00011109

PATIENT
  Age: 56 Year
  Sex: Female
  Weight: 64 kg

DRUGS (2)
  1. DUROGESIC (FENTANYL PLEISTER  12UG/UUR  (GENERIEK+DUROGESIC)) PLEISTER [Interacting]
     Active Substance: FENTANYL
     Indication: SPINAL FRACTURE
     Dosage: 1 X 12 MCG PER 3 DAGEN
     Dates: start: 20170402
  2. PARNATE [Suspect]
     Active Substance: TRANYLCYPROMINE SULFATE
     Indication: MAJOR DEPRESSION
     Dosage: 2 X 1
     Dates: start: 20160304

REACTIONS (2)
  - Psychotic disorder [Recovered/Resolved]
  - Drug interaction [Unknown]

NARRATIVE: CASE EVENT DATE: 20170404
